FAERS Safety Report 4940560-5 (Version None)
Quarter: 2006Q1

REPORT INFORMATION
  Report Type: 
  Country: None (occurrence: None)
  Receive Date: 20060201
  Receipt Date: 20051125
  Transmission Date: 20060701
  Serious: No
  Sender: FDA-Public Use
  Company Number: 2005PV004896

PATIENT
  Age: 59 Year
  Sex: Female
  Weight: 86.1834 kg

DRUGS (4)
  1. BYETTA [Suspect]
     Indication: DIABETES MELLITUS NON-INSULIN-DEPENDENT
     Dosage: 5 MCG;BID;SC
     Route: 058
     Dates: start: 20051105
  2. ACTOS [Concomitant]
  3. VITAMIN E /USA/ [Concomitant]
  4. VITAMIN B12 /GFR/ [Concomitant]

REACTIONS (4)
  - INSOMNIA [None]
  - PRURITUS [None]
  - THERAPEUTIC RESPONSE UNEXPECTED [None]
  - WEIGHT DECREASED [None]
